FAERS Safety Report 4637656-4 (Version None)
Quarter: 2005Q2

REPORT INFORMATION
  Report Type: 
  Country: None (occurrence: None)
  Receive Date: 20050418
  Receipt Date: 20050411
  Transmission Date: 20051028
  Serious: Yes (Life-Threatening, Hospitalization)
  Sender: FDA-Public Use
  Company Number: ES-GLAXOSMITHKLINE-B0378056A

PATIENT
  Age: 23 Month
  Sex: Male
  Weight: 11 kg

DRUGS (4)
  1. ZINNAT [Suspect]
     Indication: ACUTE TONSILLITIS
     Dosage: 250MG PER DAY
     Route: 048
     Dates: start: 20050216, end: 20050218
  2. DALSY [Concomitant]
     Indication: PYREXIA
     Dosage: 200MG PER DAY
     Route: 048
     Dates: start: 20050214
  3. APIRETAL [Concomitant]
     Indication: PYREXIA
     Dosage: 400MG PER DAY
     Route: 048
     Dates: start: 20050214
  4. CEFOTAXIME [Concomitant]
     Indication: DRUG USE FOR UNKNOWN INDICATION
     Route: 065
     Dates: start: 20050219, end: 20050223

REACTIONS (5)
  - EOSINOPHILIA [None]
  - HYPOTENSION [None]
  - LYMPHADENOPATHY [None]
  - PULMONARY OEDEMA [None]
  - RASH [None]
